FAERS Safety Report 21945678 (Version 3)
Quarter: 2023Q1

REPORT INFORMATION
  Report Type: Spontaneous
  Country: US (occurrence: US)
  Receive Date: 20230202
  Receipt Date: 20230320
  Transmission Date: 20230417
  Serious: No
  Sender: FDA-Public Use
  Company Number: US-SA-2023SA010351

PATIENT

DRUGS (2)
  1. LOVENOX [Suspect]
     Active Substance: ENOXAPARIN SODIUM
     Dosage: UNK
  2. LOVENOX [Suspect]
     Active Substance: ENOXAPARIN SODIUM
     Dosage: UNK

REACTIONS (1)
  - Drug ineffective [Unknown]
